FAERS Safety Report 6230664-1 (Version None)
Quarter: 2009Q2

REPORT INFORMATION
  Report Type: 
  Country: None (occurrence: None)
  Receive Date: 20090611
  Receipt Date: 20090529
  Transmission Date: 20091009
  Serious: Yes (Other)
  Sender: FDA-Public Use
  Company Number: 310001L09FRA

PATIENT
  Age: 34 Year
  Sex: Female

DRUGS (1)
  1. GONAL-F [Suspect]
     Indication: ASSISTED FERTILISATION

REACTIONS (2)
  - CONDITION AGGRAVATED [None]
  - CUTANEOUS LUPUS ERYTHEMATOSUS [None]
